FAERS Safety Report 24739877 (Version 1)
Quarter: 2024Q4

REPORT INFORMATION
  Report Type: Spontaneous
  Country: CZ (occurrence: CZ)
  Receive Date: 20241216
  Receipt Date: 20241216
  Transmission Date: 20250115
  Serious: Yes (Other)
  Sender: MYLAN
  Company Number: CZ-EMA-DD-20200512-zaviour_n-153418

PATIENT
  Age: 64 Year
  Sex: Female

DRUGS (7)
  1. CAPECITABINE [Suspect]
     Active Substance: CAPECITABINE
     Indication: Breast cancer stage I
     Dosage: UNK UNK, CYCLE
     Route: 048
     Dates: start: 201710, end: 201712
  2. DOCETAXEL [Suspect]
     Active Substance: DOCETAXEL
     Indication: Breast cancer stage I
     Dosage: UNK
     Route: 065
  3. NAVELBINE [Suspect]
     Active Substance: VINORELBINE TARTRATE
     Indication: Breast cancer stage I
     Dosage: UNK UNK, CYCLE
     Route: 065
     Dates: start: 201710, end: 201712
  4. CYCLOPHOSPHAMIDE [Suspect]
     Active Substance: CYCLOPHOSPHAMIDE
     Indication: Hormone receptor positive breast cancer
     Dosage: UNK
     Route: 065
  5. EPIRUBICIN [Suspect]
     Active Substance: EPIRUBICIN
     Indication: Hormone receptor positive breast cancer
     Dosage: UNK
     Route: 065
  6. FLUOROURACIL [Suspect]
     Active Substance: FLUOROURACIL
     Indication: Hormone receptor positive breast cancer
     Dosage: UNK
     Route: 065
  7. TAMOXIFEN [Suspect]
     Active Substance: TAMOXIFEN
     Indication: Hormone receptor positive breast cancer
     Dosage: UNK
     Route: 065

REACTIONS (7)
  - Hypoproteinaemia [Recovered/Resolved]
  - Decreased appetite [Unknown]
  - Vomiting [Recovered/Resolved]
  - Weight decreased [Recovered/Resolved]
  - Metastases to pleura [Unknown]
  - Metastases to bone [Unknown]
  - Tumour marker increased [Unknown]

NARRATIVE: CASE EVENT DATE: 20171201
